FAERS Safety Report 4756301-0 (Version None)
Quarter: 2005Q3

REPORT INFORMATION
  Report Type: 
  Country: None (occurrence: None)
  Receive Date: 20050830
  Receipt Date: 20050523
  Transmission Date: 20060218
  Serious: No
  Sender: FDA-Public Use
  Company Number: US-GLAXOSMITHKLINE-A0559991A

PATIENT
  Sex: Female

DRUGS (4)
  1. WELLBUTRIN XL [Suspect]
     Route: 048
  2. NEURONTIN [Suspect]
     Indication: PAIN
     Dosage: .5ML TWICE PER DAY
     Route: 048
  3. PAXIL [Suspect]
     Indication: DRUG USE FOR UNKNOWN INDICATION
     Route: 065
  4. DAYPRO [Concomitant]
     Route: 065

REACTIONS (4)
  - BLOOD PRESSURE ABNORMAL [None]
  - HEADACHE [None]
  - HYPERSOMNIA [None]
  - SOMNOLENCE [None]
